FAERS Safety Report 10056908 (Version 1)
Quarter: 2014Q2

REPORT INFORMATION
  Report Type: Spontaneous
  Country: GB (occurrence: GB)
  Receive Date: 20140403
  Receipt Date: 20140403
  Transmission Date: 20141212
  Serious: Yes (Hospitalization)
  Sender: FDA-Public Use
  Company Number: GB-JNJFOC-20140402221

PATIENT
  Age: 40 Year
  Sex: Female

DRUGS (15)
  1. XARELTO [Suspect]
     Indication: PRODUCT USED FOR UNKNOWN INDICATION
     Route: 048
  2. FOLIC ACID [Concomitant]
     Route: 065
  3. BISOPROLOL [Concomitant]
     Route: 065
  4. CO-CODAMOL [Concomitant]
     Route: 065
  5. FERROUS FUMARATE [Concomitant]
     Route: 065
  6. WARFARIN [Concomitant]
     Route: 065
  7. WARFARIN [Concomitant]
     Route: 065
  8. WARFARIN [Concomitant]
     Route: 065
  9. WARFARIN [Concomitant]
     Route: 065
  10. AMLODIPINE [Concomitant]
     Route: 065
  11. OMEPRAZOLE [Concomitant]
     Route: 065
  12. OTOMIZE [Concomitant]
     Route: 065
  13. TRAMADOL [Concomitant]
     Route: 065
  14. UTOVLAN [Concomitant]
     Route: 065
  15. MIRENA [Concomitant]
     Route: 065

REACTIONS (14)
  - Mean cell volume abnormal [Not Recovered/Not Resolved]
  - White blood cell count increased [Not Recovered/Not Resolved]
  - Neutrophil count increased [Not Recovered/Not Resolved]
  - Mean cell haemoglobin decreased [Not Recovered/Not Resolved]
  - Haematocrit decreased [Recovering/Resolving]
  - Haemoglobin decreased [Recovering/Resolving]
  - Lymphocyte count decreased [Recovering/Resolving]
  - Polychondritis [Recovering/Resolving]
  - Dyspnoea [Recovering/Resolving]
  - Eosinophil count decreased [Recovering/Resolving]
  - Ecchymosis [Recovering/Resolving]
  - Blood creatine phosphokinase increased [Recovering/Resolving]
  - Chest pain [Recovering/Resolving]
  - Platelet count decreased [Recovering/Resolving]
